FAERS Safety Report 5455959-0 (Version None)
Quarter: 2007Q3

REPORT INFORMATION
  Report Type: 
  Country: None (occurrence: None)
  Receive Date: 20070914
  Receipt Date: 20070914
  Transmission Date: 20080115
  Serious: No
  Sender: FDA-Public Use
  Company Number: None

PATIENT
  Age: 45 Year
  Sex: Female
  Weight: 80.2867 kg

DRUGS (1)
  1. PRILOSEC OTC [Suspect]
     Indication: GASTROINTESTINAL DISORDER
     Dosage: 1 TABLE 20 MG  1 DAILY  PO
     Route: 048
     Dates: start: 20070902, end: 20070911

REACTIONS (1)
  - RASH PRURITIC [None]
